FAERS Safety Report 9841575 (Version 1)
Quarter: 2013Q4

REPORT INFORMATION
  Report Type: Spontaneous
  Country: US (occurrence: None)
  Receive Date: 20131211
  Receipt Date: 20131211
  Transmission Date: 20140711
  Serious: Yes (Other)
  Sender: FDA-Public Use
  Company Number: ALL1-2012-03855

PATIENT
  Sex: Male

DRUGS (1)
  1. VYVANSE [Suspect]
     Indication: ATTENTION DEFICIT/HYPERACTIVITY DISORDER
     Dosage: 1X/DAY:QD (HALF OF 70 MG CAPSULE CONTENT), ORAL
     Route: 048
     Dates: start: 201202

REACTIONS (5)
  - Depression [None]
  - Asthenia [None]
  - Attention deficit/hyperactivity disorder [None]
  - Wrong technique in drug usage process [None]
  - Product quality issue [None]
